FAERS Safety Report 8197279-X (Version None)
Quarter: 2012Q1

REPORT INFORMATION
  Report Type: 
  Country: None (occurrence: None)
  Receive Date: 20120309
  Receipt Date: 20120228
  Transmission Date: 20120608
  Serious: Yes (Hospitalization)
  Sender: FDA-Public Use
  Company Number: KR-PFIZER INC-2012033706

PATIENT
  Age: 56 Year
  Sex: Male
  Weight: 42.1 kg

DRUGS (8)
  1. AXITINIB [Suspect]
     Indication: HEPATIC NEOPLASM MALIGNANT
     Dosage: 2 MG, 2X/DAY
     Route: 048
     Dates: start: 20120117, end: 20120205
  2. VITAMIN B COMPLEX CAP [Concomitant]
     Indication: VITAMIN SUPPLEMENTATION
     Dosage: 1 TABLET, 1X/DAY
     Route: 048
     Dates: start: 20101208
  3. ISOLEUCINE/LEUCINE/VALINE [Concomitant]
     Indication: SUPPLEMENTATION THERAPY
     Dosage: 1 PKG, 2X/DAY
     Route: 048
     Dates: start: 20120103
  4. MORPHINE SULFATE [Concomitant]
     Indication: ABDOMINAL PAIN
     Dosage: 15 MG, 3X/DAY
     Route: 048
     Dates: start: 20110816
  5. FENTANYL [Concomitant]
     Indication: ABDOMINAL PAIN
     Dosage: 12 UG, AS NEEDED
     Route: 062
     Dates: start: 20111220
  6. URSA [Concomitant]
     Indication: PROPHYLAXIS
     Dosage: 200 MG, 2X/DAY
     Route: 048
     Dates: start: 20101208
  7. HEPATAMINE [Concomitant]
     Indication: MEDICAL DIET
     Dosage: 500 ML, 1X/DAY
     Route: 042
     Dates: start: 20120131, end: 20120131
  8. MEGESTROL [Concomitant]
     Indication: DECREASED APPETITE
     Dosage: 10 ML, 1X/DAY
     Route: 048
     Dates: start: 20120131

REACTIONS (3)
  - ENCEPHALOPATHY [None]
  - PERITONITIS BACTERIAL [None]
  - ELECTROLYTE IMBALANCE [None]
